FAERS Safety Report 14335094 (Version 1)
Quarter: 2017Q4

REPORT INFORMATION
  Report Type: Spontaneous
  Country: FR (occurrence: FR)
  Receive Date: 20171229
  Receipt Date: 20171229
  Transmission Date: 20180321
  Serious: Yes (Life-Threatening)
  Sender: FDA-Public Use
  Company Number: FR-ZYDUS-018645

PATIENT
  Age: 13 Year
  Sex: Male

DRUGS (3)
  1. ACICLOVIR [Suspect]
     Active Substance: ACYCLOVIR
     Indication: ERYTHEMA MULTIFORME
  2. THALIDOMIDE [Concomitant]
     Active Substance: THALIDOMIDE
     Indication: ERYTHEMA MULTIFORME
  3. COLCHICINE. [Suspect]
     Active Substance: COLCHICINE
     Indication: ERYTHEMA MULTIFORME
     Dosage: UNK

REACTIONS (1)
  - Treatment failure [Unknown]
